FAERS Safety Report 9648426 (Version 1)
Quarter: 2013Q4

REPORT INFORMATION
  Report Type: Spontaneous
  Country: BR (occurrence: BR)
  Receive Date: 20131028
  Receipt Date: 20131028
  Transmission Date: 20140711
  Serious: Yes (Other)
  Sender: FDA-Public Use
  Company Number: BR-SANOFI-AVENTIS-2012SA075892

PATIENT
  Age: 31 Year
  Sex: Female
  Weight: 118 kg

DRUGS (4)
  1. CLEXANE [Suspect]
     Indication: HYPERCOAGULATION
     Route: 051
     Dates: start: 20121015
  2. ATENOLOL [Concomitant]
     Indication: CARDIAC DISORDER
     Route: 048
     Dates: start: 20111102
  3. PENICILLIN G BENZATHINE [Concomitant]
     Indication: CARDIAC DISORDER
     Dosage: 1 INJECTION EVERY 21 DAYS
     Route: 030
     Dates: start: 201208
  4. SYNTHROID [Concomitant]
     Indication: HYPOTHYROIDISM
     Route: 048
     Dates: start: 2008

REACTIONS (1)
  - Abortion [Unknown]
